FAERS Safety Report 6011416-4 (Version None)
Quarter: 2008Q4

REPORT INFORMATION
  Report Type: 
  Country: None (occurrence: None)
  Receive Date: 20081218
  Receipt Date: 19990310
  Transmission Date: 20090506
  Serious: Yes (Death)
  Sender: FDA-Public Use
  Company Number: CA-ROCHE-202185

PATIENT
  Sex: Female

DRUGS (2)
  1. TASMAR [Suspect]
     Indication: PARKINSON'S DISEASE
     Route: 048
     Dates: start: 19980116
  2. SINEMET [Concomitant]
     Indication: DRUG USE FOR UNKNOWN INDICATION
     Route: 048

REACTIONS (1)
  - ISCHAEMIC STROKE [None]
